FAERS Safety Report 4648494-0 (Version None)
Quarter: 2005Q2

REPORT INFORMATION
  Report Type: 
  Country: None (occurrence: None)
  Receive Date: 20050427
  Receipt Date: 20050413
  Transmission Date: 20051028
  Serious: Yes (Other)
  Sender: FDA-Public Use
  Company Number: 05-0049PO

PATIENT
  Age: 39 Year
  Sex: Female

DRUGS (1)
  1. MEFENAMIC ACID [Suspect]
     Indication: ABDOMINAL PAIN
     Dosage: 500 MG ONCE; PO
     Route: 048
     Dates: start: 20050409, end: 20050409

REACTIONS (1)
  - FACE OEDEMA [None]
